FAERS Safety Report 10432603 (Version 1)
Quarter: 2014Q3

REPORT INFORMATION
  Report Type: Spontaneous
  Country: US (occurrence: None)
  Receive Date: 20140904
  Receipt Date: 20140904
  Transmission Date: 20150326
  Serious: No
  Sender: FDA-Public Use
  Company Number: None

PATIENT
  Age: 64 Year
  Sex: Female
  Weight: 79.38 kg

DRUGS (5)
  1. OCTREOTIDE [Suspect]
     Active Substance: OCTREOTIDE
     Indication: ACROMEGALY
     Dosage: 200 MCG SQ TID
     Route: 058
     Dates: start: 1995
  2. LOSARTAN [Concomitant]
     Active Substance: LOSARTAN
  3. NORVASC [Concomitant]
     Active Substance: AMLODIPINE BESYLATE
  4. CALTRATE [Concomitant]
     Active Substance: CALCIUM CARBONATE
  5. SIMVASTATIN. [Concomitant]
     Active Substance: SIMVASTATIN

REACTIONS (1)
  - Drug hypersensitivity [None]

NARRATIVE: CASE EVENT DATE: 20140826
